FAERS Safety Report 18673440 (Version 1)
Quarter: 2020Q4

REPORT INFORMATION
  Report Type: Spontaneous
  Country: US (occurrence: US)
  Receive Date: 20201228
  Receipt Date: 20201228
  Transmission Date: 20210114
  Serious: Yes (Hospitalization)
  Sender: FDA-Public Use
  Company Number: US-PFIZER INC-2020506648

PATIENT

DRUGS (2)
  1. PARNATE [Suspect]
     Active Substance: TRANYLCYPROMINE SULFATE
     Dosage: 60 MG
  2. ALPRAZOLAM. [Suspect]
     Active Substance: ALPRAZOLAM
     Dosage: UNK

REACTIONS (2)
  - Drug ineffective [Unknown]
  - Illness [Unknown]
